FAERS Safety Report 6569739-6 (Version None)
Quarter: 2010Q1

REPORT INFORMATION
  Report Type: 
  Country: None (occurrence: None)
  Receive Date: 20100204
  Receipt Date: 20100125
  Transmission Date: 20100710
  Serious: Yes (Other)
  Sender: FDA-Public Use
  Company Number: US-JNJFOC-20091104066

PATIENT
  Sex: Male
  Weight: 67.13 kg

DRUGS (7)
  1. REMICADE [Suspect]
     Indication: COLITIS
     Route: 042
     Dates: start: 20080101, end: 20091006
  2. REMICADE [Suspect]
     Route: 042
     Dates: start: 20080101, end: 20091006
  3. REMICADE [Suspect]
     Indication: CROHN'S DISEASE
     Route: 042
     Dates: start: 20080101, end: 20091006
  4. REMICADE [Suspect]
     Route: 042
     Dates: start: 20080101, end: 20091006
  5. ENTOCORT EC [Concomitant]
  6. IMODIUM [Concomitant]
     Dosage: 2 TABLETS EACH MORNING
  7. VENOFER [Concomitant]

REACTIONS (2)
  - IRON DEFICIENCY [None]
  - PETIT MAL EPILEPSY [None]
